FAERS Safety Report 7985551-5 (Version None)
Quarter: 2011Q4

REPORT INFORMATION
  Report Type: 
  Country: None (occurrence: None)
  Receive Date: 20111216
  Receipt Date: 20111212
  Transmission Date: 20120403
  Serious: No
  Sender: FDA-Public Use
  Company Number: US-JNJFOC-20111205395

PATIENT
  Sex: Female
  Weight: 62.14 kg

DRUGS (3)
  1. DEPO-PROVERA [Concomitant]
     Dosage: EVERY 3 MONTHS
     Route: 065
  2. OXYCODONE HCL [Concomitant]
     Indication: FIBROMYALGIA
     Route: 048
     Dates: start: 20110601
  3. DURAGESIC-100 [Suspect]
     Indication: FIBROMYALGIA
     Route: 062
     Dates: start: 20111001

REACTIONS (5)
  - WRONG TECHNIQUE IN DRUG USAGE PROCESS [None]
  - PAIN [None]
  - MALAISE [None]
  - DRUG DOSE OMISSION [None]
  - PRODUCT QUALITY ISSUE [None]
